FAERS Safety Report 6313738-6 (Version None)
Quarter: 2009Q3

REPORT INFORMATION
  Report Type: 
  Country: None (occurrence: None)
  Receive Date: 20090814
  Receipt Date: 20090729
  Transmission Date: 20100115
  Serious: Yes (Death)
  Sender: FDA-Public Use
  Company Number: DSA_40559_2009

PATIENT
  Age: 83 Year
  Sex: Male

DRUGS (2)
  1. DINISOR (DINISOR RETARD - DILTIAZEM) (NOT SPECIFIED) [Suspect]
     Indication: MYOCARDIAL ISCHAEMIA
     Dosage: 240 MG QD ORAL
     Route: 048
     Dates: start: 20030101, end: 20090120
  2. IRBESARTAN [Suspect]
     Indication: MYOCARDIAL ISCHAEMIA
     Dosage: DF
     Dates: start: 20030101, end: 20090120

REACTIONS (6)
  - BRADYCARDIA [None]
  - CARDIO-RESPIRATORY ARREST [None]
  - DIZZINESS [None]
  - DRUG INTERACTION [None]
  - HYPERKALAEMIA [None]
  - MUSCULAR WEAKNESS [None]
